FAERS Safety Report 4682906-1 (Version None)
Quarter: 2005Q2

REPORT INFORMATION
  Report Type: 
  Country: None (occurrence: None)
  Receive Date: 20050602
  Receipt Date: 20050301
  Transmission Date: 20051028
  Serious: No
  Sender: FDA-Public Use
  Company Number: US_0411108520

PATIENT
  Age: 63 Year
  Sex: Female

DRUGS (7)
  1. PROZAC [Suspect]
     Indication: DEPRESSION
     Dosage: 20 MG/ QO DAY
  2. CYMBALTA [Suspect]
     Indication: DEPRESSION
     Dosage: 30 MG DAY
     Dates: start: 20041101
  3. THYROID THERAPY, UNSPECIFIED [Concomitant]
  4. PRILOSEC (OMEPRAZOLE RATIOPHARM) [Concomitant]
  5. SINGULAIR (MONTELUKAST) [Concomitant]
  6. ESTRADIOL [Concomitant]
  7. LIPITOR [Concomitant]

REACTIONS (8)
  - AGITATION [None]
  - ANGER [None]
  - CONDITION AGGRAVATED [None]
  - DRUG INEFFECTIVE [None]
  - EUPHORIC MOOD [None]
  - IRRITABILITY [None]
  - RHINORRHOEA [None]
  - SUICIDAL IDEATION [None]
